FAERS Safety Report 5692266-5 (Version None)
Quarter: 2008Q2

REPORT INFORMATION
  Report Type: 
  Country: None (occurrence: None)
  Receive Date: 20080402
  Receipt Date: 20080324
  Transmission Date: 20081010
  Serious: Yes (Life-Threatening)
  Sender: FDA-Public Use
  Company Number: TR-PFIZER INC-2008027337

PATIENT
  Sex: Female
  Weight: 62 kg

DRUGS (3)
  1. FLURBIPROFEN TABLET [Suspect]
     Indication: ARTHRALGIA
     Route: 048
     Dates: start: 20080102, end: 20080103
  2. FLUOCORTOLONE [Concomitant]
     Route: 048
  3. LANSOPRAZOLE [Concomitant]
     Dosage: DAILY DOSE:15MG
     Route: 048

REACTIONS (1)
  - MENORRHAGIA [None]
